FAERS Safety Report 25390316 (Version 1)
Quarter: 2025Q2

REPORT INFORMATION
  Report Type: Spontaneous
  Country: US (occurrence: None)
  Receive Date: 20250602
  Receipt Date: 20250602
  Transmission Date: 20250717
  Serious: Yes (Hospitalization)
  Sender: FDA-CTU
  Company Number: None

PATIENT
  Age: 48 Year
  Sex: Female

DRUGS (1)
  1. SKYRIZI [Suspect]
     Active Substance: RISANKIZUMAB-RZAA
     Indication: Psoriasis
     Dosage: OTHER FREQUENCY : Q 12W;?

REACTIONS (6)
  - Haematological infection [None]
  - Psoriasis [None]
  - Inflammation [None]
  - Psoriatic arthropathy [None]
  - Spinal disorder [None]
  - Infection [None]
